FAERS Safety Report 18976661 (Version 6)
Quarter: 2021Q3

REPORT INFORMATION
  Report Type: Report from Study
  Country: US (occurrence: US)
  Receive Date: 20210306
  Receipt Date: 20210903
  Transmission Date: 20211014
  Serious: No
  Sender: FDA-Public Use
  Company Number: NVSC2021US044522

PATIENT
  Sex: Female

DRUGS (2)
  1. ENTRESTO [Suspect]
     Active Substance: SACUBITRIL\VALSARTAN
     Indication: PRODUCT USED FOR UNKNOWN INDICATION
     Dosage: 1 DF BID (49/51MG)
     Route: 048
     Dates: start: 20201001
  2. ENTRESTO [Suspect]
     Active Substance: SACUBITRIL\VALSARTAN
     Dosage: 50 MG, BID (24/26MG)
     Route: 048

REACTIONS (7)
  - Blood pressure inadequately controlled [Unknown]
  - Product use in unapproved indication [Unknown]
  - Blood potassium decreased [Unknown]
  - Cardiac murmur [Unknown]
  - Renal disorder [Unknown]
  - Fatigue [Unknown]
  - Anaemia [Unknown]
